FAERS Safety Report 6865819-6 (Version None)
Quarter: 2010Q3

REPORT INFORMATION
  Report Type: 
  Country: None (occurrence: None)
  Receive Date: 20100720
  Receipt Date: 20100714
  Transmission Date: 20110219
  Serious: Yes (Death, Other)
  Sender: FDA-Public Use
  Company Number: 2009JP000469

PATIENT
  Age: 55 Year
  Sex: Male

DRUGS (11)
  1. PROGRAF [Suspect]
     Indication: STEM CELL TRANSPLANT
     Dosage: 0.02 MG/KG, CONTINUOUS
  2. PROGRAF [Suspect]
     Indication: STEM CELL TRANSPLANT
     Dosage: ORAL
     Route: 048
  3. GANCICLOVIR [Concomitant]
  4. FOSCARNET [Concomitant]
  5. STEROID (STEROID) [Concomitant]
  6. THYMOGLOBULIN [Concomitant]
  7. BUSULFAN (BUSULFAN) [Concomitant]
  8. MELPHALAN HYDROCHLORIDE [Concomitant]
  9. ACYCLOVIR [Concomitant]
  10. METHYLPREDNISOLONE [Concomitant]
  11. FOSCARNET [Concomitant]

REACTIONS (4)
  - CARDIAC ARREST [None]
  - CYTOMEGALOVIRUS DUODENITIS [None]
  - HAEMATURIA [None]
  - VIRAL MYOCARDITIS [None]
